FAERS Safety Report 17796792 (Version 2)
Quarter: 2020Q2

REPORT INFORMATION
  Report Type: Report from Study
  Country: US (occurrence: US)
  Receive Date: 20200518
  Receipt Date: 20200519
  Transmission Date: 20200714
  Serious: Yes (Other)
  Sender: FDA-Public Use
  Company Number: US-ROCHE-2600157

PATIENT
  Age: 34 Year
  Sex: Female

DRUGS (1)
  1. OCREVUS [Suspect]
     Active Substance: OCRELIZUMAB
     Indication: PRIMARY PROGRESSIVE MULTIPLE SCLEROSIS
     Dosage: ONGOING YES
     Route: 065
     Dates: start: 20180627

REACTIONS (3)
  - Hypertension [Recovered/Resolved]
  - Hypersensitivity [Unknown]
  - Body temperature increased [Recovered/Resolved]

NARRATIVE: CASE EVENT DATE: 20180627
